FAERS Safety Report 5842095-4 (Version None)
Quarter: 2008Q3

REPORT INFORMATION
  Report Type: 
  Country: None (occurrence: None)
  Receive Date: 20080731
  Receipt Date: 20080627
  Transmission Date: 20090109
  Serious: No
  Sender: FDA-Public Use
  Company Number: US200806004429

PATIENT
  Age: 41 Year
  Sex: Female

DRUGS (1)
  1. BYETTA [Suspect]
     Dosage: 10 UG UNKNOWN SUBCUTANEOUS
     Route: 058
     Dates: start: 20070101

REACTIONS (2)
  - BLOOD GLUCOSE INCREASED [None]
  - EYE DISORDER [None]
